FAERS Safety Report 11714130 (Version 3)
Quarter: 2015Q4

REPORT INFORMATION
  Report Type: Spontaneous
  Country: US (occurrence: US)
  Receive Date: 20151109
  Receipt Date: 20151231
  Transmission Date: 20160304
  Serious: No
  Sender: FDA-Public Use
  Company Number: US-PFIZER INC-2015372232

PATIENT
  Age: 73 Year
  Sex: Male
  Weight: 78 kg

DRUGS (3)
  1. LATANOPROST. [Suspect]
     Active Substance: LATANOPROST
     Indication: GLAUCOMA
     Dosage: 1 DROP IN EACH EYE EVERY NIGHT
     Route: 047
     Dates: end: 20151028
  2. PLAVIX [Concomitant]
     Active Substance: CLOPIDOGREL BISULFATE
  3. LATANOPROST. [Suspect]
     Active Substance: LATANOPROST
     Dosage: 1 DROP IN EACH EYE EVERY NIGHT
     Dates: start: 20151029

REACTIONS (2)
  - Product quality issue [Recovered/Resolved]
  - Eye irritation [Recovered/Resolved]

NARRATIVE: CASE EVENT DATE: 20151028
